FAERS Safety Report 7520114-7 (Version None)
Quarter: 2011Q2

REPORT INFORMATION
  Report Type: 
  Country: None (occurrence: None)
  Receive Date: 20110602
  Receipt Date: 20110520
  Transmission Date: 20111010
  Serious: Yes (Other)
  Sender: FDA-Public Use
  Company Number: US-CELGENEUS-163-21880-10052167

PATIENT
  Sex: Male
  Weight: 93 kg

DRUGS (2)
  1. REVLIMID [Suspect]
     Indication: MULTIPLE MYELOMA
     Dosage: 15 MILLIGRAM
     Route: 048
     Dates: start: 20100111
  2. ASPIRIN [Concomitant]
     Route: 065

REACTIONS (4)
  - ECCHYMOSIS [None]
  - MUSCLE SPASMS [None]
  - CONSTIPATION [None]
  - HAEMORRHAGE [None]
